FAERS Safety Report 5703650-5 (Version None)
Quarter: 2008Q2

REPORT INFORMATION
  Report Type: 
  Country: None (occurrence: None)
  Receive Date: 20080411
  Receipt Date: 20080402
  Transmission Date: 20081010
  Serious: Yes (Death, Other)
  Sender: FDA-Public Use
  Company Number: US-GENENTECH-227963

PATIENT

DRUGS (4)
  1. BEVACIZUMAB [Suspect]
     Indication: NEOPLASM MALIGNANT
  2. FLUOROURACIL [Suspect]
     Indication: NEOPLASM MALIGNANT
  3. HYDROXYUREA [Suspect]
     Indication: NEOPLASM MALIGNANT
  4. RADIOTHERAPY [Suspect]
     Indication: NEOPLASM MALIGNANT

REACTIONS (3)
  - ASPIRATION [None]
  - CEREBROVASCULAR ACCIDENT [None]
  - SEPSIS [None]
